FAERS Safety Report 5348985-3 (Version None)
Quarter: 2007Q2

REPORT INFORMATION
  Report Type: 
  Country: None (occurrence: None)
  Receive Date: 20070607
  Receipt Date: 20070525
  Transmission Date: 20071010
  Serious: Yes (Other)
  Sender: FDA-Public Use
  Company Number: GB-JNJFOC-20070506621

PATIENT
  Sex: Female

DRUGS (1)
  1. TRAMACET [Suspect]
     Indication: PAIN
     Route: 048
     Dates: start: 20070508, end: 20070510

REACTIONS (4)
  - HYPERHIDROSIS [None]
  - LOSS OF CONSCIOUSNESS [None]
  - ORTHOSTATIC HYPOTENSION [None]
  - TREMOR [None]
